FAERS Safety Report 8833964 (Version 1)
Quarter: 2012Q4

REPORT INFORMATION
  Report Type: 
  Country: US (occurrence: US)
  Receive Date: 20121010
  Receipt Date: 20121010
  Transmission Date: 20130627
  Serious: No
  Sender: FDA-Public Use
  Company Number: US-009507513-1210USA003447

PATIENT
  Age: 59 Year
  Sex: Female

DRUGS (1)
  1. VICTRELIS [Suspect]
     Indication: HEPATITIS C
     Dosage: 200 mg, 4 capsules every 8 hours
     Dates: start: 2012

REACTIONS (1)
  - Renal disorder [Unknown]
